FAERS Safety Report 9201675 (Version 3)
Quarter: 2013Q3

REPORT INFORMATION
  Report Type: Spontaneous
  Country: BR (occurrence: BR)
  Receive Date: 20130401
  Receipt Date: 20130830
  Transmission Date: 20140515
  Serious: Yes (Other)
  Sender: FDA-Public Use
  Company Number: PHHY2013BR031026

PATIENT
  Age: 57 Year
  Sex: Male
  Weight: 85 kg

DRUGS (8)
  1. DIOVAN [Suspect]
     Indication: HYPERTENSION
     Dosage: 1 DF (320 MG) DAILY
     Route: 048
     Dates: start: 2009
  2. AAS [Concomitant]
     Indication: COAGULOPATHY
     Dosage: 1 DF, QD
     Route: 048
  3. OMEPRAZOLE [Concomitant]
     Indication: ABDOMINAL DISCOMFORT
     Dosage: 1 DF, (20 MG) QD
     Route: 048
  4. SELOZOK [Concomitant]
     Indication: INFARCTION
     Dosage: 2 DF, (100 MG) QD
     Route: 048
  5. ALOPURINOL [Concomitant]
     Indication: GOUT
     Dosage: 1 DF, (100 MG) QD
     Route: 048
  6. SINVASTATINA [Concomitant]
     Indication: BLOOD CHOLESTEROL
     Dosage: 1 DF, (20 MG) QD
     Route: 048
  7. SINVASTATINA [Concomitant]
     Indication: BLOOD TRIGLYCERIDES INCREASED
  8. FUROSEMIDE [Concomitant]
     Indication: POLYURIA
     Dosage: 1 DF, (40 MG) QD
     Route: 048

REACTIONS (1)
  - Infarction [Recovered/Resolved]
